FAERS Safety Report 20082542 (Version 1)
Quarter: 2021Q4

REPORT INFORMATION
  Report Type: Spontaneous
  Country: FR (occurrence: FR)
  Receive Date: 20211117
  Receipt Date: 20211117
  Transmission Date: 20220303
  Serious: Yes (Death)
  Sender: FDA-Public Use
  Company Number: None

PATIENT
  Age: 67 Year
  Sex: Male

DRUGS (8)
  1. ESCITALOPRAM [Interacting]
     Active Substance: ESCITALOPRAM OXALATE
     Indication: Product used for unknown indication
     Dosage: 10 MG ,THERAPY START DATE :ASKU
     Route: 048
     Dates: end: 20210927
  2. ASPIRIN [Interacting]
     Active Substance: ASPIRIN
     Indication: Peripheral arterial occlusive disease
     Dosage: 75 MG ,THERAPY START DATE :ASKU
     Route: 048
     Dates: start: 20210927
  3. METFORMIN HYDROCHLORIDE [Concomitant]
     Active Substance: METFORMIN HYDROCHLORIDE
     Dosage: 1000 MG ,THERAPY START DATE :ASKU
     Route: 048
     Dates: end: 20210927
  4. CHOLECALCIFEROL [Concomitant]
     Active Substance: CHOLECALCIFEROL
     Dosage: 50000 IU ,THERAPY START DATE :ASKU
     Route: 048
     Dates: end: 20210927
  5. ESOMEPRAZOLE [Concomitant]
     Active Substance: ESOMEPRAZOLE
     Dosage: 20 MG ,THERAPY START DATE :ASKU
     Route: 048
     Dates: end: 20210927
  6. PROPRANOLOL [Concomitant]
     Active Substance: PROPRANOLOL HYDROCHLORIDE
     Dosage: 160 MG ,THERAPY START DATE :ASKU
     Route: 048
     Dates: end: 20210927
  7. CODEINE [Concomitant]
     Active Substance: CODEINE
     Dosage: UNKNOWN ,THERAPY START DATE :ASKU
     Route: 048
     Dates: end: 20210927
  8. ATORVASTATIN [Concomitant]
     Active Substance: ATORVASTATIN
     Dosage: 10 MG ,THERAPY START DATE :ASKU
     Route: 048
     Dates: end: 20210927

REACTIONS (2)
  - Cerebral haematoma [Fatal]
  - Drug interaction [Unknown]

NARRATIVE: CASE EVENT DATE: 20210927
